FAERS Safety Report 11064724 (Version 1)
Quarter: 2015Q2

REPORT INFORMATION
  Report Type: Spontaneous
  Country: US (occurrence: US)
  Receive Date: 20150424
  Receipt Date: 20150424
  Transmission Date: 20150821
  Serious: Yes (Other)
  Sender: FDA-Public Use
  Company Number: PHHY2015US046477

PATIENT
  Age: 38 Year
  Sex: Male

DRUGS (4)
  1. OKT3 [Suspect]
     Active Substance: MUROMONAB-CD3
     Indication: IMMUNOSUPPRESSION
     Route: 065
  2. CICLOSPORIN [Suspect]
     Active Substance: CYCLOSPORINE
     Indication: IMMUNOSUPPRESSION
     Route: 065
  3. AZATHIOPRINE. [Suspect]
     Active Substance: AZATHIOPRINE
     Indication: IMMUNOSUPPRESSION
     Route: 065
  4. SIROLIMUS. [Suspect]
     Active Substance: SIROLIMUS
     Indication: IMMUNOSUPPRESSION
     Route: 065

REACTIONS (5)
  - Pyelonephritis [Unknown]
  - Urinary tract infection [Unknown]
  - Cardiac failure [Unknown]
  - Diarrhoea haemorrhagic [Unknown]
  - Ventricular arrhythmia [Unknown]
